FAERS Safety Report 10073008 (Version 3)
Quarter: 2014Q2

REPORT INFORMATION
  Report Type: Spontaneous
  Country: DE (occurrence: DE)
  Receive Date: 20140411
  Receipt Date: 20140515
  Transmission Date: 20141212
  Serious: No
  Sender: FDA-Public Use
  Company Number: DE-UCBSA-116978

PATIENT
  Age: 48 Year
  Sex: Male
  Weight: 117 kg

DRUGS (5)
  1. LEVETIRACETAM UCB [Suspect]
     Route: 048
     Dates: start: 201301
  2. ALLOPURINOL [Concomitant]
     Indication: GOUT
     Dosage: STRENGTH: 300 MG
     Route: 048
     Dates: start: 2005
  3. RAMIPRIL [Concomitant]
     Indication: HYPERTENSION
     Dosage: 10 MG
     Route: 048
     Dates: start: 2007
  4. RAMIPRIL [Concomitant]
     Indication: HYPERTENSION
     Dosage: 5 MG
     Route: 048
     Dates: start: 2009
  5. ERGENYL CHRONO [Concomitant]
     Dosage: UNKNOWN DOSE

REACTIONS (3)
  - Oedema [Unknown]
  - Arthralgia [Unknown]
  - Vitamin D deficiency [Unknown]
